FAERS Safety Report 5072317-1 (Version None)
Quarter: 2006Q3

REPORT INFORMATION
  Report Type: 
  Country: None (occurrence: None)
  Receive Date: 20060807
  Receipt Date: 20060723
  Transmission Date: 20061208
  Serious: Yes (Other)
  Sender: FDA-Public Use
  Company Number: JP-JNJFOC-20060705114

PATIENT
  Age: 69 Year
  Sex: Male

DRUGS (1)
  1. ITRACONAZOLE [Suspect]
     Indication: NAIL TINEA
     Route: 048
     Dates: start: 20060707, end: 20060709

REACTIONS (1)
  - PANCREATITIS [None]
